FAERS Safety Report 21457432 (Version 1)
Quarter: 2022Q4

REPORT INFORMATION
  Report Type: Spontaneous
  Country: FR (occurrence: FR)
  Receive Date: 20221014
  Receipt Date: 20221014
  Transmission Date: 20230113
  Serious: Yes (Other)
  Sender: FDA-Public Use
  Company Number: None

PATIENT
  Age: 49 Year
  Sex: Female
  Weight: 102 kg

DRUGS (1)
  1. LYRICA [Suspect]
     Active Substance: PREGABALIN
     Indication: Anxiety
     Dosage: UNK UNK, QD, 2 TABLETS OF 50 MG PER DAY
     Route: 048
     Dates: start: 20220523, end: 20220823

REACTIONS (9)
  - Hallucination, auditory [Recovering/Resolving]
  - Dyspnoea [Recovering/Resolving]
  - Fall [Recovering/Resolving]
  - Syncope [Recovering/Resolving]
  - Hyperhidrosis [Recovering/Resolving]
  - Tremor [Recovering/Resolving]
  - Asthenia [Recovering/Resolving]
  - Balance disorder [Recovering/Resolving]
  - Hot flush [Recovering/Resolving]
